FAERS Safety Report 23894781 (Version 1)
Quarter: 2024Q2

REPORT INFORMATION
  Report Type: Spontaneous
  Country: BR (occurrence: None)
  Receive Date: 20240524
  Receipt Date: 20240524
  Transmission Date: 20240716
  Serious: Yes (Hospitalization, Other)
  Sender: FDA-Public Use
  Company Number: BR-Unichem Pharmaceuticals (USA) Inc-UCM202405-000530

PATIENT
  Age: 65 Year
  Sex: Female

DRUGS (3)
  1. LAMOTRIGINE [Suspect]
     Active Substance: LAMOTRIGINE
     Indication: Seizure
  2. LAMOTRIGINE [Suspect]
     Active Substance: LAMOTRIGINE
  3. DIVALPROEX SODIUM [Suspect]
     Active Substance: DIVALPROEX SODIUM
     Indication: Seizure

REACTIONS (6)
  - Acute generalised exanthematous pustulosis [Recovering/Resolving]
  - Condition aggravated [Recovering/Resolving]
  - Oliguria [Unknown]
  - Dry mouth [Unknown]
  - Disorientation [Unknown]
  - Somnolence [Unknown]
